FAERS Safety Report 14012660 (Version 1)
Quarter: 2017Q3

REPORT INFORMATION
  Report Type: Spontaneous
  Country: US (occurrence: US)
  Receive Date: 20170926
  Receipt Date: 20170926
  Transmission Date: 20171128
  Serious: No
  Sender: FDA-Public Use
  Company Number: US-DEPOMED, INC.-US-2017DEP000556

PATIENT

DRUGS (2)
  1. CYMBALTA [Concomitant]
     Active Substance: DULOXETINE HYDROCHLORIDE
     Indication: NEUROPATHY PERIPHERAL
     Dosage: 60 MG, QD
     Route: 048
  2. GRALISE [Suspect]
     Active Substance: GABAPENTIN
     Indication: NEUROPATHY PERIPHERAL
     Dosage: 300 MG, QD, TITRATED UP TO 1800 MG, QD
     Route: 048
     Dates: start: 201505

REACTIONS (3)
  - Product use in unapproved indication [Not Recovered/Not Resolved]
  - Somnolence [Recovered/Resolved]
  - Drug titration error [Recovered/Resolved]

NARRATIVE: CASE EVENT DATE: 2015
